FAERS Safety Report 9917067 (Version 1)
Quarter: 2014Q1

REPORT INFORMATION
  Report Type: Spontaneous
  Country: AU (occurrence: AU)
  Receive Date: 20140221
  Receipt Date: 20140221
  Transmission Date: 20141002
  Serious: Yes (Other)
  Sender: FDA-Public Use
  Company Number: AU-ALLERGAN-1402963US

PATIENT
  Age: 52 Year
  Sex: Female

DRUGS (1)
  1. BOTULINUM TOXIN TYPE A UNK [Suspect]
     Indication: SKIN WRINKLING
     Dosage: UNK, SINGLE

REACTIONS (1)
  - Angle closure glaucoma [Unknown]
